FAERS Safety Report 8906151 (Version 1)
Quarter: 2012Q4

REPORT INFORMATION
  Report Type: Spontaneous
  Country: US (occurrence: None)
  Receive Date: 20121025
  Receipt Date: 20121025
  Transmission Date: 20130627
  Serious: Yes (Other)
  Sender: FDA-Public Use
  Company Number: 2009020563

PATIENT
  Age: 56 Year
  Sex: Female

DRUGS (2)
  1. PRIVIGEN (IMMUNE GLOBULIN INTRAVENOUS (HUMAN) 10% LIQUID) [Suspect]
     Indication: COMMON VARIABLE IMMUNODEFICIENCY
     Dosage: 20 g 1x/month, 25 g 1x/month
     Route: 042
     Dates: start: 20090120, end: 20090330
  2. PRIVIGEN (IMMUNE GLOBULIN INTRAVENOUS (HUMAN) 10% LIQUID) [Suspect]
     Indication: BRONCHOPULMONARY INFECTION
     Dosage: 20 g 1x/month, 25 g 1x/month
     Route: 042
     Dates: start: 20090120, end: 20090330

REACTIONS (2)
  - Bronchopneumonia [None]
  - Blood immunoglobulin G decreased [None]
